FAERS Safety Report 7382473-8 (Version None)
Quarter: 2011Q1

REPORT INFORMATION
  Report Type: 
  Country: None (occurrence: None)
  Receive Date: 20110329
  Receipt Date: 20110228
  Transmission Date: 20110831
  Serious: Yes (Other)
  Sender: FDA-Public Use
  Company Number: US-BAYER-201041515NA

PATIENT
  Sex: Female
  Weight: 53.515 kg

DRUGS (9)
  1. TRAMADOL [Concomitant]
     Dosage: UNK
     Dates: start: 20060202
  2. YAZ [Suspect]
     Indication: CONTRACEPTION
  3. YAZ [Suspect]
     Indication: ACNE
     Dosage: UNK
     Dates: start: 20090824
  4. KEFLEX [Concomitant]
     Dosage: 500 MG, UNK
     Route: 048
     Dates: start: 20100105
  5. LIDODERM [Concomitant]
     Dosage: UNK
     Route: 061
     Dates: start: 20090929
  6. YASMIN [Suspect]
     Indication: ORAL CONTRACEPTION
  7. CHANTIX [Concomitant]
     Dosage: 0.5 MG, UNK
     Route: 048
     Dates: start: 20100105
  8. YASMIN [Suspect]
     Indication: ACNE
     Dosage: UNK
     Dates: start: 20090824, end: 20100101
  9. OMEPRAZOLE [Concomitant]
     Dosage: 20 MG, UNK
     Route: 048
     Dates: start: 20100115

REACTIONS (4)
  - INJURY [None]
  - GALLBLADDER DISORDER [None]
  - CHOLELITHIASIS [None]
  - CHOLECYSTITIS [None]
